FAERS Safety Report 7466105-6 (Version None)
Quarter: 2011Q2

REPORT INFORMATION
  Report Type: 
  Country: None (occurrence: None)
  Receive Date: 20110509
  Receipt Date: 20100618
  Transmission Date: 20111010
  Serious: No
  Sender: FDA-Public Use
  Company Number: US-ALEXION-A201000715

PATIENT
  Sex: Male

DRUGS (6)
  1. EXJADE [Concomitant]
     Dosage: 500 MG, TID
     Route: 048
  2. SOLIRIS [Suspect]
     Indication: PAROXYSMAL NOCTURNAL HAEMOGLOBINURIA
     Dosage: 900 MG, UNK
     Route: 042
     Dates: start: 20080815
  3. VICODIN [Concomitant]
     Indication: BACK PAIN
     Dosage: UNK
     Route: 048
  4. LASIX [Concomitant]
     Dosage: 20 MG, UNK
  5. NEXIUM [Concomitant]
     Dosage: 40 MG, QD
     Route: 048
  6. RESTORIL                           /00393701/ [Concomitant]
     Dosage: UNK
     Route: 048

REACTIONS (9)
  - BURNING SENSATION [None]
  - ERECTILE DYSFUNCTION [None]
  - DYSPHAGIA [None]
  - WHITE BLOOD CELL COUNT DECREASED [None]
  - HAEMOGLOBIN DECREASED [None]
  - HEADACHE [None]
  - DIZZINESS [None]
  - MALAISE [None]
  - FATIGUE [None]
